FAERS Safety Report 5419559-0 (Version None)
Quarter: 2007Q3

REPORT INFORMATION
  Report Type: 
  Country: None (occurrence: None)
  Receive Date: 20070815
  Receipt Date: 20070815
  Transmission Date: 20080115
  Serious: Yes (Other)
  Sender: FDA-Public Use
  Company Number: None

PATIENT
  Age: 49 Year
  Sex: Female
  Weight: 77.1115 kg

DRUGS (2)
  1. XANAX [Suspect]
     Indication: ANXIETY DISORDER
     Dosage: .25 TO .5   AS NEEDED  PO
     Route: 048
     Dates: start: 20070731, end: 20070812
  2. ALPRAZOLAM  .5   PUREPAC [Suspect]
     Indication: ANXIETY DISORDER
     Dosage: .25 TO .5  AS NEEDED  PO
     Route: 048
     Dates: start: 20070731, end: 20070812

REACTIONS (2)
  - CHEST DISCOMFORT [None]
  - TINNITUS [None]
